FAERS Safety Report 20475264 (Version 1)
Quarter: 2022Q1

REPORT INFORMATION
  Report Type: Spontaneous
  Country: US (occurrence: None)
  Receive Date: 20220214
  Receipt Date: 20220214
  Transmission Date: 20220423
  Serious: Yes (Other)
  Sender: FDA-Public Use
  Company Number: None

PATIENT
  Age: 55 Year
  Sex: Female
  Weight: 76 kg

DRUGS (1)
  1. MELOXICAM [Suspect]
     Active Substance: MELOXICAM
     Indication: Rotator cuff syndrome
     Dosage: OTHER QUANTITY : 1 TABLET(S);?OTHER FREQUENCY : ONCE TAKEN ONLY;?
     Route: 048
     Dates: start: 20220205, end: 20220205

REACTIONS (10)
  - Pruritus [None]
  - Pruritus [None]
  - Burning sensation [None]
  - Burning sensation [None]
  - Oedema peripheral [None]
  - Oedema peripheral [None]
  - Rash erythematous [None]
  - Rash [None]
  - Rash [None]
  - Unevaluable event [None]

NARRATIVE: CASE EVENT DATE: 20220205
